FAERS Safety Report 7261862-6 (Version None)
Quarter: 2011Q1

REPORT INFORMATION
  Report Type: 
  Country: None (occurrence: None)
  Receive Date: 20110125
  Receipt Date: 20110125
  Transmission Date: 20110831
  Serious: Yes (Other)
  Sender: FDA-Public Use
  Company Number: None

PATIENT
  Age: 51 Year
  Sex: Male
  Weight: 90.7194 kg

DRUGS (1)
  1. ALCOHOL PREP PADS UNKNOWN TRIAD [Suspect]
     Indication: FOLLICULITIS
     Dosage: MULTIPLE PADS DAILY CUTANEOUS
     Route: 003

REACTIONS (2)
  - PRODUCT CONTAMINATION MICROBIAL [None]
  - APPLICATION SITE CELLULITIS [None]
